FAERS Safety Report 10592894 (Version 1)
Quarter: 2014Q4

REPORT INFORMATION
  Report Type: Spontaneous
  Country: US (occurrence: None)
  Receive Date: 20141118
  Receipt Date: 20141118
  Transmission Date: 20150529
  Serious: Yes (Disabling, Other)
  Sender: FDA-Public Use
  Company Number: None

PATIENT

DRUGS (1)
  1. MEFLOQUINE [Suspect]
     Active Substance: MEFLOQUINE

REACTIONS (5)
  - Social phobia [None]
  - Sleep disorder [None]
  - Hyperthyroidism [None]
  - Panic attack [None]
  - Amnesia [None]
